FAERS Safety Report 6727555-6 (Version None)
Quarter: 2010Q2

REPORT INFORMATION
  Report Type: 
  Country: None (occurrence: None)
  Receive Date: 20100517
  Receipt Date: 20100512
  Transmission Date: 20101027
  Serious: Yes (Death, Hospitalization, Other)
  Sender: FDA-Public Use
  Company Number: PHHY2010CN18313

PATIENT
  Sex: Male
  Weight: 65 kg

DRUGS (3)
  1. SEBIVO [Suspect]
     Indication: HEPATITIS B
     Dosage: 600 MG EVERY DAY
     Route: 048
     Dates: start: 20090410, end: 20100301
  2. CLINDAMYCIN [Concomitant]
  3. GLUTATHIONE [Concomitant]

REACTIONS (19)
  - ABDOMINAL PAIN [None]
  - APPENDICITIS [None]
  - ASTHENIA [None]
  - BACTERIAL INFECTION [None]
  - BLOOD CREATINE PHOSPHOKINASE INCREASED [None]
  - DEATH [None]
  - ELECTROLYTE IMBALANCE [None]
  - FATIGUE [None]
  - GAIT DISTURBANCE [None]
  - HYPERTHERMIA [None]
  - HYPOKALAEMIA [None]
  - LACTIC ACIDOSIS [None]
  - MUSCULAR WEAKNESS [None]
  - MYALGIA [None]
  - MYOPATHY [None]
  - NAUSEA [None]
  - PALPITATIONS [None]
  - RESPIRATORY DISORDER [None]
  - VOMITING [None]
